FAERS Safety Report 23436835 (Version 4)
Quarter: 2025Q1

REPORT INFORMATION
  Report Type: Report from Study
  Country: US (occurrence: US)
  Receive Date: 20240124
  Receipt Date: 20250213
  Transmission Date: 20250408
  Serious: Yes (Disabling, Other)
  Sender: AMGEN
  Company Number: US-HORIZON THERAPEUTICS-HZN-2021-009310

PATIENT
  Age: 53 Year
  Sex: Female

DRUGS (44)
  1. TEPEZZA [Suspect]
     Active Substance: TEPROTUMUMAB-TRBW
     Indication: Endocrine ophthalmopathy
     Dosage: UNK, Q3WK
     Route: 042
     Dates: start: 20220124
  2. TEPEZZA [Suspect]
     Active Substance: TEPROTUMUMAB-TRBW
     Route: 042
     Dates: start: 20220524
  3. TEPEZZA [Suspect]
     Active Substance: TEPROTUMUMAB-TRBW
     Route: 042
     Dates: end: 20230329
  4. SODIUM CHLORIDE [Concomitant]
     Active Substance: SODIUM CHLORIDE
     Route: 042
  5. TRANSDERM SCOP [Concomitant]
     Active Substance: SCOPOLAMINE
     Route: 065
  6. BSS [Concomitant]
     Active Substance: CALCIUM CHLORIDE\MAGNESIUM CHLORIDE\POTASSIUM CHLORIDE\SODIUM ACETATE\SODIUM CHLORIDE\SODIUM CITRATE
     Route: 065
  7. MARCAINE [Concomitant]
     Active Substance: BUPIVACAINE HYDROCHLORIDE
     Route: 065
  8. THROMBIN [Concomitant]
     Active Substance: THROMBIN
     Route: 065
  9. BACITRACIN ZINC [Concomitant]
     Route: 065
  10. DEXTROSE [Concomitant]
     Active Substance: DEXTROSE MONOHYDRATE
     Route: 065
  11. ZOFRAN [Concomitant]
     Active Substance: ONDANSETRON HYDROCHLORIDE
     Indication: Nausea
     Dosage: 4 MILLIGRAM, Q8H
     Route: 048
     Dates: start: 20240509
  12. ZOFRAN [Concomitant]
     Active Substance: ONDANSETRON HYDROCHLORIDE
     Indication: Vomiting
  13. SUBLIMAZE [Concomitant]
     Active Substance: FENTANYL CITRATE
     Route: 065
  14. MEDROL [Concomitant]
     Active Substance: METHYLPREDNISOLONE
     Route: 065
  15. NORCO [Concomitant]
     Active Substance: ACETAMINOPHEN\HYDROCODONE BITARTRATE
     Route: 065
  16. TOBRADEX [Concomitant]
     Active Substance: DEXAMETHASONE\TOBRAMYCIN
     Route: 065
  17. PROAIR HFA [Concomitant]
     Active Substance: ALBUTEROL SULFATE
     Indication: Wheezing
     Dosage: UNK, Q6H
     Route: 048
  18. PROAIR HFA [Concomitant]
     Active Substance: ALBUTEROL SULFATE
     Indication: Dyspnoea
  19. XANAX [Concomitant]
     Active Substance: ALPRAZOLAM
     Dosage: 0.5 MILLIGRAM, BID
     Route: 048
     Dates: start: 20210125
  20. CELEXA [Concomitant]
     Active Substance: CITALOPRAM HYDROBROMIDE
     Dosage: 40 MILLIGRAM, QD
     Route: 048
     Dates: start: 20210125
  21. ESTRACE [Concomitant]
     Active Substance: ESTRADIOL
     Dosage: 1 MILLIGRAM, QD
     Route: 048
     Dates: start: 20210125, end: 20240430
  22. SYNTHROID [Concomitant]
     Active Substance: LEVOTHYROXINE SODIUM
     Dosage: 75 MICROGRAM, QD
     Route: 048
     Dates: start: 20210125
  23. ROXICODONE [Concomitant]
     Active Substance: OXYCODONE HYDROCHLORIDE
     Indication: Pain
     Dosage: 5 MILLIGRAM, Q6H, (ONE TABLET TO TWO TABLETS)
     Route: 048
     Dates: start: 20240509
  24. PROTONIX [Concomitant]
     Active Substance: PANTOPRAZOLE SODIUM
     Dosage: 40 MILLIGRAM, QD
     Route: 048
     Dates: start: 20210125
  25. PROMETRIUM [Concomitant]
     Active Substance: PROGESTERONE
     Route: 048
     Dates: start: 20210125, end: 20240430
  26. ULTRAM [Concomitant]
     Active Substance: TRAMADOL HYDROCHLORIDE
     Indication: Pain
     Dosage: 50 MILLIGRAM, Q8H
     Route: 048
     Dates: start: 20220506, end: 20230329
  27. ANCEF [Concomitant]
     Active Substance: CEFAZOLIN SODIUM
     Route: 065
  28. Pf [Concomitant]
     Route: 065
  29. DIPRIVAN [Concomitant]
     Active Substance: PROPOFOL
     Route: 065
  30. ROCURONIUM [Concomitant]
     Active Substance: ROCURONIUM BROMIDE
     Route: 065
  31. DILAUDID [Concomitant]
     Active Substance: HYDROMORPHONE HYDROCHLORIDE
     Route: 065
  32. DECADRON [Concomitant]
     Active Substance: DEXAMETHASONE
     Route: 065
  33. HALDOL [Concomitant]
     Active Substance: HALOPERIDOL
     Route: 065
  34. ROBINUL [Concomitant]
     Active Substance: GLYCOPYRROLATE
     Route: 065
  35. BRIDION [Concomitant]
     Active Substance: SUGAMMADEX SODIUM
     Route: 065
  36. COVID-19 vaccine [Concomitant]
     Route: 065
     Dates: start: 20220216
  37. DESYREL [Concomitant]
     Active Substance: TRAZODONE HYDROCHLORIDE
     Dosage: 100 MILLIGRAM, QD
     Route: 048
     Dates: start: 20240430
  38. ZYRTEC [Concomitant]
     Active Substance: CETIRIZINE HYDROCHLORIDE
     Dosage: 30 MILLIGRAM, QD
     Route: 048
     Dates: start: 20240430
  39. FLONASE [Concomitant]
     Active Substance: FLUTICASONE PROPIONATE
     Route: 045
     Dates: start: 20240430
  40. TUMS [Concomitant]
     Active Substance: CALCIUM CARBONATE
     Dosage: 500 MILLIGRAM, Q3H
     Route: 048
     Dates: start: 20240430
  41. TYLENOL [Concomitant]
     Active Substance: ACETAMINOPHEN
     Indication: Pain
     Dosage: 650 MILLIGRAM, Q8H, (TWO TABLETS)
     Route: 048
     Dates: start: 20240430
  42. COLACE [Concomitant]
     Active Substance: DOCUSATE SODIUM
     Dosage: 100 MILLIGRAM, BID
     Route: 048
     Dates: start: 20240509
  43. DRISDOL [Concomitant]
     Active Substance: ERGOCALCIFEROL
     Dosage: 1250 MICROGRAM, QWK
     Route: 048
     Dates: start: 20220301, end: 20230215
  44. PYRIDOXINE HYDROCHLORIDE [Concomitant]
     Active Substance: PYRIDOXINE HYDROCHLORIDE
     Dosage: UNK UNK, QD
     Route: 048
     Dates: start: 20220415, end: 20230215

REACTIONS (22)
  - Physical disability [Not Recovered/Not Resolved]
  - Blindness transient [Unknown]
  - Deafness neurosensory [Not Recovered/Not Resolved]
  - Emotional distress [Not Recovered/Not Resolved]
  - Injury [Not Recovered/Not Resolved]
  - Economic problem [Not Recovered/Not Resolved]
  - Pain [Not Recovered/Not Resolved]
  - Anxiety [Not Recovered/Not Resolved]
  - Impaired quality of life [Not Recovered/Not Resolved]
  - Somnolence [Unknown]
  - Nasopharyngitis [Unknown]
  - Hair growth abnormal [Unknown]
  - Product quality issue [Unknown]
  - Symptom recurrence [Unknown]
  - Blood thyroid stimulating hormone decreased [Unknown]
  - Inappropriate schedule of product administration [Unknown]
  - COVID-19 [Unknown]
  - Nausea [Unknown]
  - Headache [Unknown]
  - Fatigue [Unknown]
  - Tinnitus [Not Recovered/Not Resolved]
  - Diarrhoea [Not Recovered/Not Resolved]

NARRATIVE: CASE EVENT DATE: 20220101
